FAERS Safety Report 12302943 (Version 1)
Quarter: 2016Q2

REPORT INFORMATION
  Report Type: Spontaneous
  Country: MX (occurrence: MX)
  Receive Date: 20160426
  Receipt Date: 20160426
  Transmission Date: 20160815
  Serious: Yes (Hospitalization)
  Sender: FDA-Public Use
  Company Number: MX-009507513-1604MEX014802

PATIENT
  Age: 61 Year
  Sex: Female
  Weight: 56 kg

DRUGS (2)
  1. RIBAVIRIN. [Suspect]
     Active Substance: RIBAVIRIN
     Dosage: UNK
     Dates: start: 20160124, end: 2016
  2. PEGTRON [Suspect]
     Active Substance: PEGINTERFERON ALFA-2B
     Dosage: UNK
     Dates: start: 20160124, end: 2016

REACTIONS (1)
  - Dermatitis [Not Recovered/Not Resolved]

NARRATIVE: CASE EVENT DATE: 2016
